FAERS Safety Report 17428239 (Version 1)
Quarter: 2020Q1

REPORT INFORMATION
  Report Type: Spontaneous
  Country: DE (occurrence: DE)
  Receive Date: 20200217
  Receipt Date: 20200217
  Transmission Date: 20200409
  Serious: Yes (Hospitalization, Other)
  Sender: FDA-Public Use
  Company Number: DE-MYLANLABS-2020M1016217

PATIENT
  Age: 80 Year
  Sex: Male

DRUGS (10)
  1. RAMIPRIL. [Concomitant]
     Active Substance: RAMIPRIL
     Dosage: 5 MG, QD (1X1
  2. VIGANTOLETTEN [Concomitant]
     Active Substance: CHOLECALCIFEROL
     Dosage: 1,UNK,QD/STRENGTH:1000 IE;DOSE: 3000 IE, (1X3
  3. ACETYLSALICYLIC ACID [Concomitant]
     Active Substance: ASPIRIN
     Dosage: 100 MG, QD (1X1)
  4. GLUCOBAY [Suspect]
     Active Substance: ACARBOSE
     Indication: PRODUCT USED FOR UNKNOWN INDICATION
     Dosage: 50 MG, TID (3X1)
  5. JANUMET [Suspect]
     Active Substance: METFORMIN HYDROCHLORIDE\SITAGLIPTIN PHOSPHATE
     Indication: TYPE 2 DIABETES MELLITUS
     Dosage: 1 TABLET (50 MILLIGRAM/1000 MILLIGRAM), TWICE DAILY
     Route: 048
     Dates: end: 20190812
  6. ATORVASTATIN [Suspect]
     Active Substance: ATORVASTATIN
     Indication: DYSLIPIDAEMIA
     Dosage: 40 MG, QD (1X1)
  7. TROMCARDIN COMPLEX [Suspect]
     Active Substance: DIETARY SUPPLEMENT
     Indication: PRODUCT USED FOR UNKNOWN INDICATION
     Dosage: 2X1
  8. MAGNETRANS FORTE [Suspect]
     Active Substance: MAGNESIUM OXIDE
     Indication: PRODUCT USED FOR UNKNOWN INDICATION
     Dosage: 150 MG, BID (2X1)
  9. TAMSULOSIN [Suspect]
     Active Substance: TAMSULOSIN
     Indication: PROSTATIC DISORDER
     Dosage: 0.4 MG, QD (1X1)
  10. DEXAMETHASONE W/NEOMYCIN SULFATE   /01034901/ [Concomitant]
     Dosage: STRENGTH: 2.45 MG/1 MG/ 1 ML; DOSE: 4X1

REACTIONS (5)
  - Hepatitis cholestatic [Recovered/Resolved]
  - Drug-induced liver injury [Recovered/Resolved]
  - Laboratory test abnormal [Recovered/Resolved]
  - Weight decreased [Unknown]
  - Cerebrovascular accident [Unknown]

NARRATIVE: CASE EVENT DATE: 201812
